FAERS Safety Report 11094958 (Version 2)
Quarter: 2015Q2

REPORT INFORMATION
  Report Type: Report from Study
  Country: US (occurrence: US)
  Receive Date: 20150506
  Receipt Date: 20150604
  Transmission Date: 20150821
  Serious: Yes (Other)
  Sender: FDA-Public Use
  Company Number: US-SA-2015SA026957

PATIENT
  Age: 30 Year
  Sex: Female

DRUGS (4)
  1. AUBAGIO [Suspect]
     Active Substance: TERIFLUNOMIDE
     Indication: MULTIPLE SCLEROSIS
     Route: 048
     Dates: end: 20150428
  2. CYMBALTA [Concomitant]
     Active Substance: DULOXETINE HYDROCHLORIDE
  3. AUBAGIO [Suspect]
     Active Substance: TERIFLUNOMIDE
     Indication: MULTIPLE SCLEROSIS
     Route: 048
     Dates: start: 20150221, end: 201503
  4. PREDNISONE. [Concomitant]
     Active Substance: PREDNISONE
     Route: 048

REACTIONS (19)
  - Multiple sclerosis relapse [Recovering/Resolving]
  - Pain [Unknown]
  - Fatigue [Unknown]
  - Nervous system disorder [Not Recovered/Not Resolved]
  - Systemic lupus erythematosus [Unknown]
  - Condition aggravated [Unknown]
  - Hair growth abnormal [Not Recovered/Not Resolved]
  - Amnesia [Unknown]
  - Gait disturbance [Not Recovered/Not Resolved]
  - Influenza like illness [Recovering/Resolving]
  - Lethargy [Unknown]
  - Fibromyalgia [Unknown]
  - Muscle spasms [Not Recovered/Not Resolved]
  - Abdominal discomfort [Recovering/Resolving]
  - Speech disorder [Not Recovered/Not Resolved]
  - Malaise [Recovering/Resolving]
  - Nausea [Unknown]
  - Hepatic enzyme increased [Recovering/Resolving]
  - Alopecia [Not Recovered/Not Resolved]

NARRATIVE: CASE EVENT DATE: 2015
